FAERS Safety Report 13567711 (Version 1)
Quarter: 2017Q2

REPORT INFORMATION
  Report Type: Spontaneous
  Country: CN (occurrence: CN)
  Receive Date: 20170522
  Receipt Date: 20170522
  Transmission Date: 20170830
  Serious: Yes (Death)
  Sender: FDA-Public Use
  Company Number: CN-CELGENEUS-CHN-20170502867

PATIENT
  Age: 67 Year
  Sex: Female

DRUGS (3)
  1. GM-CSF [Concomitant]
     Active Substance: GRANULOCYTE-MACROPHAGE COLONY-STIMULATING FACTOR
     Indication: PANCREATIC CARCINOMA METASTATIC
     Route: 058
     Dates: end: 20060110
  2. ABRAXANE [Suspect]
     Active Substance: PACLITAXEL
     Indication: PANCREATIC CARCINOMA METASTATIC
     Dosage: 100 MG
     Route: 041
     Dates: start: 201509
  3. APATINIB [Concomitant]
     Active Substance: APATINIB
     Indication: PANCREATIC CARCINOMA METASTATIC
     Dosage: 500 MG
     Route: 065

REACTIONS (2)
  - Pancreatic carcinoma [Unknown]
  - Gastrointestinal haemorrhage [Fatal]

NARRATIVE: CASE EVENT DATE: 20160329
